FAERS Safety Report 21127514 (Version 1)
Quarter: 2022Q3

REPORT INFORMATION
  Report Type: Spontaneous
  Country: US (occurrence: US)
  Receive Date: 20220725
  Receipt Date: 20220725
  Transmission Date: 20221026
  Serious: No
  Sender: FDA-Public Use
  Company Number: US-ABBVIE-21K-163-4153628-00

PATIENT
  Sex: Female
  Weight: 136.20 kg

DRUGS (1)
  1. SYNTHROID [Suspect]
     Active Substance: LEVOTHYROXINE SODIUM
     Indication: Product used for unknown indication
     Route: 048

REACTIONS (10)
  - Weight increased [Unknown]
  - Malaise [Unknown]
  - Gait disturbance [Unknown]
  - Tendon pain [Unknown]
  - Myalgia [Unknown]
  - Asthenia [Unknown]
  - Decreased interest [Unknown]
  - Impaired quality of life [Unknown]
  - Fatigue [Unknown]
  - Drug ineffective [Unknown]
